FAERS Safety Report 7349815-0 (Version None)
Quarter: 2011Q1

REPORT INFORMATION
  Report Type: 
  Country: None (occurrence: None)
  Receive Date: 20110314
  Receipt Date: 20110302
  Transmission Date: 20110831
  Serious: Yes (Hospitalization, Other)
  Sender: FDA-Public Use
  Company Number: GB-ROCHE-663822

PATIENT
  Sex: Female
  Weight: 73 kg

DRUGS (14)
  1. TOCILIZUMAB [Suspect]
     Indication: RHEUMATOID ARTHRITIS
     Dosage: FORM: INFUSION, FREQUENCY: 4/52, DOSE: 8 MG/KG, LOADING DOSE.
     Route: 042
     Dates: start: 20090407
  2. TOCILIZUMAB [Suspect]
     Route: 042
     Dates: start: 20090825
  3. TOCILIZUMAB [Suspect]
     Dosage: MAINTENANCE DOSE.
     Route: 042
     Dates: start: 20090630
  4. TOCILIZUMAB [Suspect]
     Dosage: FORM: INFUSION. STUDY MA21573
     Route: 042
     Dates: end: 20090407
  5. PREDNISOLONE [Suspect]
     Route: 048
     Dates: start: 20091028
  6. ADCAL D3 [Concomitant]
     Indication: PROPHYLAXIS
     Dosage: START: PRIOR TO TRIAL.
     Route: 048
  7. PREDNISOLONE [Suspect]
     Indication: RHEUMATOID ARTHRITIS
     Route: 048
     Dates: end: 20091015
  8. HYDROCORTISONE [Concomitant]
     Dates: start: 20091006, end: 20091007
  9. NIFEDINE [Concomitant]
     Dosage: 40 MG/AB
     Dates: start: 20091005, end: 20091006
  10. TOCILIZUMAB [Suspect]
     Dosage: PERMANENTLY DISCONTINUED.
     Route: 042
     Dates: start: 20090922, end: 20090922
  11. SALBUTAMOL [Concomitant]
     Dates: start: 20091011, end: 20091013
  12. TOCILIZUMAB [Suspect]
     Route: 042
     Dates: start: 20090728
  13. SIMVASTATIN [Concomitant]
     Dates: start: 20090604, end: 20090915
  14. ALENDRONIC ACID [Concomitant]
     Indication: PROPHYLAXIS
     Dosage: START: PRIOR TO THE TRIAL
     Route: 049

REACTIONS (2)
  - COLITIS ISCHAEMIC [None]
  - RENAL ONCOCYTOMA [None]
